FAERS Safety Report 13144309 (Version 1)
Quarter: 2017Q1

REPORT INFORMATION
  Report Type: Spontaneous
  Country: US (occurrence: US)
  Receive Date: 20170124
  Receipt Date: 20170124
  Transmission Date: 20170428
  Serious: No
  Sender: FDA-Public Use
  Company Number: US-BAYER-2017-013750

PATIENT

DRUGS (3)
  1. LEVITRA [Suspect]
     Active Substance: VARDENAFIL HYDROCHLORIDE TRIHYDRATE
     Dosage: 50 MG, UNK
  2. VIAGRA [Concomitant]
     Active Substance: SILDENAFIL CITRATE
     Dosage: 25 MG, UNK
  3. CIALIS [Concomitant]
     Active Substance: TADALAFIL
     Dosage: UNK

REACTIONS (1)
  - Headache [None]
